FAERS Safety Report 6029672-5 (Version None)
Quarter: 2009Q1

REPORT INFORMATION
  Report Type: 
  Country: None (occurrence: None)
  Receive Date: 20090107
  Receipt Date: 20081226
  Transmission Date: 20090719
  Serious: Yes (Hospitalization, Other)
  Sender: FDA-Public Use
  Company Number: US-PFIZER INC-2008093834

PATIENT
  Sex: Female

DRUGS (1)
  1. CORTISONE ACETATE [Suspect]

REACTIONS (1)
  - HYPERSENSITIVITY [None]
